FAERS Safety Report 6212836 (Version 5)
Quarter: 2015Q4

REPORT INFORMATION
  Report Type: Spontaneous
  Country: GB (occurrence: GB)
  Receive Date: 20061124
  Receipt Date: 20151009
  Transmission Date: 20160305
  Serious: Yes (Death)
  Sender: FDA-Public Use
  Company Number: GB-PFIZER INC-2006130417

PATIENT
  Age: 64 Year
  Sex: Female

DRUGS (2)
  1. SERTRALINE HCL [Suspect]
     Active Substance: SERTRALINE HYDROCHLORIDE
     Dosage: BOLUS OVERDOSE
  2. DIAZEPAM. [Suspect]
     Active Substance: DIAZEPAM
     Dosage: UNK

REACTIONS (3)
  - Overdose [Fatal]
  - Completed suicide [Fatal]
  - Drowning [Fatal]

NARRATIVE: CASE EVENT DATE: 20060830
